FAERS Safety Report 6161502-3 (Version None)
Quarter: 2009Q2

REPORT INFORMATION
  Report Type: 
  Country: None (occurrence: None)
  Receive Date: 20090421
  Receipt Date: 20090417
  Transmission Date: 20091009
  Serious: Yes (Death, Other)
  Sender: FDA-Public Use
  Company Number: PHHY2009IT14705

PATIENT

DRUGS (5)
  1. CYCLOSPORINE [Suspect]
     Indication: STEM CELL TRANSPLANT
     Dosage: UNK
  2. CYCLOSPORINE [Suspect]
     Indication: ACUTE GRAFT VERSUS HOST DISEASE
  3. METHYLPREDNISOLONE 4MG TAB [Suspect]
     Indication: STEM CELL TRANSPLANT
     Dosage: 2 MG/KG/DAY
  4. METHYLPREDNISOLONE 4MG TAB [Suspect]
     Indication: ACUTE GRAFT VERSUS HOST DISEASE
  5. DACLIZUMAB [Suspect]
     Indication: ACUTE GRAFT VERSUS HOST DISEASE
     Dosage: UNK

REACTIONS (2)
  - ACUTE GRAFT VERSUS HOST DISEASE [None]
  - ACUTE MYELOID LEUKAEMIA [None]
